FAERS Safety Report 9263878 (Version 1)
Quarter: 2013Q2

REPORT INFORMATION
  Report Type: Report from Study
  Country: US (occurrence: US)
  Receive Date: 20130430
  Receipt Date: 20130430
  Transmission Date: 20140414
  Serious: Yes (Death, Other)
  Sender: FDA-Public Use
  Company Number: US-TEVA-401025USA

PATIENT
  Sex: Male

DRUGS (1)
  1. CLOZAPINE [Suspect]
     Route: 048

REACTIONS (1)
  - Death [Fatal]
